FAERS Safety Report 14716329 (Version 1)
Quarter: 2018Q2

REPORT INFORMATION
  Report Type: Spontaneous
  Country: US (occurrence: US)
  Receive Date: 20180404
  Receipt Date: 20180404
  Transmission Date: 20180711
  Serious: No
  Sender: FDA-Public Use
  Company Number: PHEH2018US012861

PATIENT
  Age: 52 Year
  Sex: Female

DRUGS (1)
  1. CLOBETASOL PROPIONATE. [Suspect]
     Active Substance: CLOBETASOL PROPIONATE
     Indication: INFLAMMATION
     Dosage: UNK
     Route: 065
     Dates: start: 201803, end: 201803

REACTIONS (2)
  - Palpitations [Unknown]
  - Expired product administered [Unknown]

NARRATIVE: CASE EVENT DATE: 201803
